FAERS Safety Report 16276661 (Version 1)
Quarter: 2019Q2

REPORT INFORMATION
  Report Type: Spontaneous
  Country: US (occurrence: US)
  Receive Date: 20190506
  Receipt Date: 20190506
  Transmission Date: 20190711
  Serious: No
  Sender: FDA-Public Use
  Company Number: PHEH2019US018694

PATIENT
  Sex: Female

DRUGS (2)
  1. PROMACTA [Suspect]
     Active Substance: ELTROMBOPAG OLAMINE
     Dosage: 50 MG, EVERY OTHER DAY
     Route: 048
  2. PROMACTA [Suspect]
     Active Substance: ELTROMBOPAG OLAMINE
     Dosage: 75 MG, EVERY OTHER DAY
     Route: 048

REACTIONS (4)
  - Blood pressure decreased [Unknown]
  - Arthralgia [Unknown]
  - Dizziness [Unknown]
  - Polyuria [Unknown]
